FAERS Safety Report 5914915-6 (Version None)
Quarter: 2008Q4

REPORT INFORMATION
  Report Type: 
  Country: None (occurrence: None)
  Receive Date: 20081010
  Receipt Date: 20081007
  Transmission Date: 20090506
  Serious: Yes (Death, Hospitalization)
  Sender: FDA-Public Use
  Company Number: PHBS2008AT05932

PATIENT
  Age: 52 Year
  Sex: Female

DRUGS (6)
  1. CYCLOSPORINE [Suspect]
     Indication: LUNG TRANSPLANT
  2. BASILIXIMAB [Suspect]
     Indication: LUNG TRANSPLANT
     Dosage: 20 MG ON DAY 82, 89 AND 96
     Route: 042
  3. MYCOPHENOLATE MOFETIL [Suspect]
     Indication: LUNG TRANSPLANT
  4. PREDNISONE [Suspect]
     Indication: LUNG TRANSPLANT
  5. COTRIMOXAZOL ^ALIUD^ [Concomitant]
     Indication: PROPHYLAXIS
  6. VALACYCLOVIR HCL [Concomitant]
     Indication: PROPHYLAXIS

REACTIONS (19)
  - ACUTE GRAFT VERSUS HOST DISEASE [None]
  - ACUTE GRAFT VERSUS HOST DISEASE IN INTESTINE [None]
  - ACUTE GRAFT VERSUS HOST DISEASE IN LIVER [None]
  - ACUTE GRAFT VERSUS HOST DISEASE IN SKIN [None]
  - AMMONIA INCREASED [None]
  - ANAEMIA [None]
  - BONE MARROW FAILURE [None]
  - BRAIN OEDEMA [None]
  - DIARRHOEA [None]
  - GASTROINTESTINAL HAEMORRHAGE [None]
  - HAEMODYNAMIC INSTABILITY [None]
  - HYPERBILIRUBINAEMIA [None]
  - MULTI-ORGAN FAILURE [None]
  - NEUTROPENIA [None]
  - PYREXIA [None]
  - RASH MACULO-PAPULAR [None]
  - RETICULOCYTE COUNT DECREASED [None]
  - SKIN EXFOLIATION [None]
  - THROMBOCYTOPENIA [None]
